FAERS Safety Report 8987904 (Version 1)
Quarter: 2012Q4

REPORT INFORMATION
  Report Type: 
  Country: JP (occurrence: JP)
  Receive Date: 20121227
  Receipt Date: 20121227
  Transmission Date: 20130627
  Serious: Yes (Other)
  Sender: FDA-Public Use
  Company Number: JP-GLAXOSMITHKLINE-B0854603A

PATIENT

DRUGS (1)
  1. FLUTIDE DISKUS [Suspect]
     Indication: PRODUCT USED FOR UNKNOWN INDICATION
     Dosage: 100MCG Twice per day
     Route: 055

REACTIONS (2)
  - Cushing^s syndrome [Unknown]
  - Dehydroepiandrosterone increased [Unknown]
